FAERS Safety Report 5794265-1 (Version None)
Quarter: 2008Q2

REPORT INFORMATION
  Report Type: 
  Country: None (occurrence: None)
  Receive Date: 20080627
  Receipt Date: 20080625
  Transmission Date: 20081010
  Serious: Yes (Other)
  Sender: FDA-Public Use
  Company Number: US-GENENTECH-263373

PATIENT
  Sex: Female
  Weight: 102.4 kg

DRUGS (1)
  1. RAPTIVA [Suspect]
     Indication: PSORIASIS
     Dosage: 1 ML, 1/WEEK
     Route: 058
     Dates: start: 20060101

REACTIONS (1)
  - RENAL IMPAIRMENT [None]
